FAERS Safety Report 24718050 (Version 1)
Quarter: 2024Q4

REPORT INFORMATION
  Report Type: Spontaneous
  Country: CA (occurrence: CA)
  Receive Date: 20241210
  Receipt Date: 20241210
  Transmission Date: 20250115
  Serious: Yes (Death, Other)
  Sender: B BRAUN
  Company Number: CA-B.Braun Medical Inc.-2166827

PATIENT
  Age: 76 Year
  Sex: Female

DRUGS (3)
  1. HEPARIN SODIUM IN DEXTROSE [Suspect]
     Active Substance: HEPARIN SODIUM
  2. ENOXAPARIN [Suspect]
     Active Substance: ENOXAPARIN
  3. WARFARIN [Suspect]
     Active Substance: WARFARIN

REACTIONS (5)
  - Haemoglobin decreased [Fatal]
  - Hypertension [Fatal]
  - Shock haemorrhagic [Fatal]
  - Retroperitoneal haemorrhage [Fatal]
  - Hypovolaemic shock [Fatal]
